FAERS Safety Report 6875996-9 (Version None)
Quarter: 2010Q3

REPORT INFORMATION
  Report Type: 
  Country: None (occurrence: None)
  Receive Date: 20100727
  Receipt Date: 20070702
  Transmission Date: 20110219
  Serious: Yes (Hospitalization, Other)
  Sender: FDA-Public Use
  Company Number: US-PFIZER INC-2006150898

PATIENT
  Sex: Male
  Weight: 133.8 kg

DRUGS (9)
  1. CELEBREX [Suspect]
     Indication: PAIN IN EXTREMITY
     Dates: start: 19990101
  2. CELEBREX [Suspect]
     Indication: ARTHRALGIA
  3. CELEBREX [Suspect]
     Indication: BACK PAIN
  4. BEXTRA [Suspect]
     Indication: PAIN IN EXTREMITY
     Dates: start: 20010101
  5. BEXTRA [Suspect]
     Indication: ARTHRALGIA
  6. VIOXX [Suspect]
     Indication: PAIN IN EXTREMITY
     Route: 048
     Dates: start: 20001213
  7. VIOXX [Suspect]
     Indication: ARTHRALGIA
  8. VIOXX [Suspect]
     Indication: BACK PAIN
  9. ACETYLSALICYLIC ACID SRT [Concomitant]
     Dates: start: 19970101, end: 20060101

REACTIONS (1)
  - MYOCARDIAL INFARCTION [None]
